FAERS Safety Report 6706944-X (Version None)
Quarter: 2010Q2

REPORT INFORMATION
  Report Type: 
  Country: None (occurrence: None)
  Receive Date: 20100430
  Receipt Date: 20100430
  Transmission Date: 20101027
  Serious: Yes (Death, Life-Threatening, Hospitalization, Other)
  Sender: FDA-Public Use
  Company Number: None

PATIENT
  Age: 35 Year
  Sex: Male

DRUGS (2)
  1. DEXEDRINE [Suspect]
     Indication: ATTENTION DEFICIT/HYPERACTIVITY DISORDER
     Dosage: 15 MG DAILY PO
     Route: 048
  2. DEXEDRINE [Suspect]
     Dosage: 5 MG DAILY PO
     Route: 048

REACTIONS (5)
  - BLOOD PRESSURE INCREASED [None]
  - DIZZINESS [None]
  - HAEMORRHAGE INTRACRANIAL [None]
  - HEADACHE [None]
  - LOSS OF CONSCIOUSNESS [None]
